FAERS Safety Report 6608606-6 (Version None)
Quarter: 2010Q1

REPORT INFORMATION
  Report Type: 
  Country: None (occurrence: None)
  Receive Date: 20100226
  Receipt Date: 20100226
  Transmission Date: 20100710
  Serious: No
  Sender: FDA-Public Use
  Company Number: None

PATIENT
  Age: 71 Year
  Sex: Male
  Weight: 81.6475 kg

DRUGS (7)
  1. OLANZAPINE [Suspect]
     Dosage: 15MG PO DISSOLVE
     Route: 048
  2. BUSPIRONE HCL [Concomitant]
  3. ENALAPRIL MALEATE [Concomitant]
  4. HALOPERIDOL [Concomitant]
  5. HYDROCHLOROTHIAZIDE [Concomitant]
  6. VIT E [Concomitant]
  7. VIT C [Concomitant]

REACTIONS (7)
  - CONVULSION [None]
  - EYE ROLLING [None]
  - HYPERHIDROSIS [None]
  - MUSCULOSKELETAL STIFFNESS [None]
  - OXYGEN SATURATION DECREASED [None]
  - PALLOR [None]
  - UNRESPONSIVE TO STIMULI [None]
